FAERS Safety Report 4392439-8 (Version None)
Quarter: 2004Q3

REPORT INFORMATION
  Report Type: 
  Country: None (occurrence: None)
  Receive Date: 20040702
  Receipt Date: 20040310
  Transmission Date: 20050211
  Serious: Yes (Other)
  Sender: FDA-Public Use
  Company Number: 2004UW04565

PATIENT
  Age: 57 Year
  Sex: Male
  Weight: 80.7403 kg

DRUGS (3)
  1. CRESTOR [Suspect]
     Indication: HYPERCHOLESTEROLAEMIA
     Dosage: 10 MG Q0D PO
     Route: 048
     Dates: start: 20040301
  2. NIACIN [Concomitant]
  3. NADOLOL [Concomitant]

REACTIONS (2)
  - FLUSHING [None]
  - HYPERHIDROSIS [None]
